FAERS Safety Report 23747749 (Version 1)
Quarter: 2024Q2

REPORT INFORMATION
  Report Type: Spontaneous
  Country: US (occurrence: None)
  Receive Date: 20240416
  Receipt Date: 20240416
  Transmission Date: 20240716
  Serious: No
  Sender: FDA-Public Use
  Company Number: None

PATIENT
  Age: 48 Year
  Sex: Male
  Weight: 94.8 kg

DRUGS (1)
  1. CISPLATIN [Suspect]
     Active Substance: CISPLATIN
     Dates: end: 20240402

REACTIONS (9)
  - Diarrhoea [None]
  - Blood pressure increased [None]
  - Intestinal mass [None]
  - Tenderness [None]
  - White blood cell count decreased [None]
  - Haemoglobin decreased [None]
  - Platelet count decreased [None]
  - Norovirus infection [None]
  - Gastrointestinal wall thickening [None]

NARRATIVE: CASE EVENT DATE: 20240402
